FAERS Safety Report 9613280 (Version 2)
Quarter: 2013Q4

REPORT INFORMATION
  Report Type: Spontaneous
  Country: US (occurrence: US)
  Receive Date: 20131010
  Receipt Date: 20131025
  Transmission Date: 20140711
  Serious: Yes (Other)
  Sender: FDA-Public Use
  Company Number: US-009507513-1310USA004002

PATIENT
  Age: 64 Year
  Sex: Female

DRUGS (7)
  1. VICTRELIS [Suspect]
     Indication: CHRONIC HEPATITIS C
     Dosage: 800 MG, Q8H
     Route: 048
     Dates: start: 20130817, end: 20131005
  2. VICTRELIS [Suspect]
     Dosage: DOSE DECREASED
     Route: 048
     Dates: start: 20131006
  3. PEGINTRON [Suspect]
     Dosage: UNK
     Dates: start: 20130720
  4. REBETOL [Suspect]
     Dosage: 600 MG, TWICE DAILY
     Route: 048
     Dates: start: 20130720, end: 20130812
  5. REBETOL [Suspect]
     Dosage: 400 MG, TWICE DAILY
     Route: 048
     Dates: start: 20130813, end: 20130815
  6. REBETOL [Suspect]
     Dosage: 200MG IN THE MORNING AND 400MG IN THE EVENING
     Route: 048
     Dates: start: 20130816, end: 20131003
  7. REBETOL [Suspect]
     Dosage: 200 MG, TWICE DAILY
     Route: 048
     Dates: start: 20131004

REACTIONS (3)
  - Blood count abnormal [Unknown]
  - Haemoglobin decreased [Unknown]
  - Blood disorder [Unknown]
